FAERS Safety Report 11057833 (Version 2)
Quarter: 2018Q1

REPORT INFORMATION
  Report Type: Report from Study
  Country: US (occurrence: US)
  Receive Date: 20150423
  Receipt Date: 20180115
  Transmission Date: 20180508
  Serious: Yes (Other)
  Sender: FDA-Public Use
  Company Number: US-AMGEN-USASP2015038727

PATIENT
  Age: 63 Year
  Sex: Male

DRUGS (4)
  1. ASPIRIN. [Concomitant]
     Active Substance: ASPIRIN
     Dosage: 81 MG, QD
     Route: 065
     Dates: start: 2017
  2. ENBREL [Suspect]
     Active Substance: ETANERCEPT
     Dosage: 50 MG, QWK
     Route: 065
  3. ENBREL [Suspect]
     Active Substance: ETANERCEPT
     Indication: PSORIATIC ARTHROPATHY
     Dosage: 25 MG, QWK
     Route: 065
     Dates: start: 2001, end: 20150413
  4. ENBREL [Suspect]
     Active Substance: ETANERCEPT
     Dosage: 50 MG, Q2WK
     Route: 065

REACTIONS (15)
  - Nephrolithiasis [Not Recovered/Not Resolved]
  - Coagulopathy [Unknown]
  - Sciatica [Recovered/Resolved]
  - Psoriasis [Not Recovered/Not Resolved]
  - Spinal cord injury cervical [Not Recovered/Not Resolved]
  - Anxiety [Unknown]
  - Off label use [Unknown]
  - Arthritis [Not Recovered/Not Resolved]
  - Exostosis [Not Recovered/Not Resolved]
  - Prostate infection [Recovering/Resolving]
  - Spinal cord compression [Not Recovered/Not Resolved]
  - Influenza [Unknown]
  - Haematocrit increased [Unknown]
  - Surgery [Unknown]
  - Blood viscosity increased [Unknown]

NARRATIVE: CASE EVENT DATE: 2001
